FAERS Safety Report 12078072 (Version 6)
Quarter: 2021Q4

REPORT INFORMATION
  Report Type: Spontaneous
  Country: US (occurrence: US)
  Receive Date: 20160215
  Receipt Date: 20211213
  Transmission Date: 20220304
  Serious: Yes (Other)
  Sender: FDA-Public Use
  Company Number: US-PFIZER INC-2016078001

PATIENT
  Age: 52 Year
  Sex: Female
  Weight: 95 kg

DRUGS (2)
  1. LYRICA [Suspect]
     Active Substance: PREGABALIN
     Indication: Neuropathy peripheral
     Dosage: 225 MG, DAILY ( 75MG BY MOUTH IN THE MORNING; 150MG BY MOUTH IN THE EVENING BEFORE BED )
     Route: 048
     Dates: end: 20160203
  2. LYRICA [Suspect]
     Active Substance: PREGABALIN
     Indication: Pain

REACTIONS (8)
  - Withdrawal syndrome [Not Recovered/Not Resolved]
  - Drug dependence [Not Recovered/Not Resolved]
  - Neuropathy peripheral [Not Recovered/Not Resolved]
  - Pain [Not Recovered/Not Resolved]
  - Condition aggravated [Unknown]
  - Insomnia [Not Recovered/Not Resolved]
  - Irritability [Not Recovered/Not Resolved]
  - Hypoacusis [Unknown]

NARRATIVE: CASE EVENT DATE: 20160204
